FAERS Safety Report 7110539-6 (Version None)
Quarter: 2010Q4

REPORT INFORMATION
  Report Type: 
  Country: None (occurrence: None)
  Receive Date: 20101118
  Receipt Date: 20101110
  Transmission Date: 20110411
  Serious: Yes (Hospitalization)
  Sender: FDA-Public Use
  Company Number: GB-ACTELION-A-CH2010-41551

PATIENT
  Age: 62 Year
  Sex: Male

DRUGS (1)
  1. TRACLEER [Suspect]
     Indication: EISENMENGER'S SYNDROME
     Dosage: UNK , UNK
     Route: 048

REACTIONS (2)
  - GASTROINTESTINAL TUBE INSERTION [None]
  - MYOCARDIAL INFARCTION [None]
